FAERS Safety Report 13371588 (Version 4)
Quarter: 2017Q2

REPORT INFORMATION
  Report Type: Report from Study
  Country: US (occurrence: US)
  Receive Date: 20170324
  Receipt Date: 20170529
  Transmission Date: 20170830
  Serious: Yes (Other)
  Sender: FDA-Public Use
  Company Number: US-BRISTOL-MYERS SQUIBB COMPANY-BMS-2017-025228

PATIENT
  Age: 69 Year
  Sex: Male
  Weight: 107 kg

DRUGS (4)
  1. BELATACEPT [Suspect]
     Active Substance: BELATACEPT
     Indication: PROPHYLAXIS AGAINST TRANSPLANT REJECTION
     Dosage: 525 MG, QMO
     Route: 042
     Dates: end: 20170320
  2. PREDNISONE. [Concomitant]
     Active Substance: PREDNISONE
     Indication: PRODUCT USED FOR UNKNOWN INDICATION
     Dosage: 5 MG, QD
     Route: 065
  3. MYCOPHENOLATE SODIUM [Suspect]
     Active Substance: MYCOPHENOLATE SODIUM
     Indication: PROPHYLAXIS AGAINST TRANSPLANT REJECTION
     Dosage: 540 MG, BID
     Route: 048
  4. TACROLIMUS. [Concomitant]
     Active Substance: TACROLIMUS
     Indication: PRODUCT USED FOR UNKNOWN INDICATION
     Dosage: 1 MG, BID
     Route: 065

REACTIONS (1)
  - Acute myeloid leukaemia [Unknown]

NARRATIVE: CASE EVENT DATE: 20170320
